FAERS Safety Report 11372137 (Version 3)
Quarter: 2015Q4

REPORT INFORMATION
  Report Type: Spontaneous
  Country: AU (occurrence: AU)
  Receive Date: 20150812
  Receipt Date: 20151126
  Transmission Date: 20160304
  Serious: Yes (Hospitalization, Other)
  Sender: FDA-Public Use
  Company Number: AU-MERCK-1508AUS005103

PATIENT
  Age: 63 Year
  Sex: Female
  Weight: 73 kg

DRUGS (1)
  1. PEMBROLIZUMAB. [Suspect]
     Active Substance: PEMBROLIZUMAB
     Indication: MALIGNANT MELANOMA
     Dosage: 150 MG EVERY 3 WEEKS
     Route: 042
     Dates: start: 20150611

REACTIONS (4)
  - Headache [Unknown]
  - Aphasia [Unknown]
  - Gait disturbance [Unknown]
  - Disease progression [Unknown]

NARRATIVE: CASE EVENT DATE: 20150727
